FAERS Safety Report 13805831 (Version 3)
Quarter: 2019Q2

REPORT INFORMATION
  Report Type: Spontaneous
  Country: US (occurrence: US)
  Receive Date: 20170728
  Receipt Date: 20190530
  Transmission Date: 20190711
  Serious: Yes (Other)
  Sender: FDA-Public Use
  Company Number: US-PFIZER INC-2017326888

PATIENT
  Age: 57 Year
  Sex: Female
  Weight: 122 kg

DRUGS (1)
  1. LYRICA [Suspect]
     Active Substance: PREGABALIN
     Indication: FIBROMYALGIA
     Dosage: 150 MG, 2X/DAY (150MG WHITE CAPSULE TWICE A DAY)
     Route: 048
     Dates: start: 201401, end: 20170630

REACTIONS (9)
  - Condition aggravated [Not Recovered/Not Resolved]
  - Gastroenteritis viral [Recovered/Resolved]
  - Loss of personal independence in daily activities [Unknown]
  - Impaired work ability [Recovered/Resolved]
  - Rhinorrhoea [Unknown]
  - Bronchitis [Recovered/Resolved]
  - Lower respiratory tract infection [Recovered/Resolved]
  - Fibromyalgia [Not Recovered/Not Resolved]
  - Cough [Recovered/Resolved]

NARRATIVE: CASE EVENT DATE: 20170627
